FAERS Safety Report 5104218-4 (Version None)
Quarter: 2006Q3

REPORT INFORMATION
  Report Type: 
  Country: None (occurrence: None)
  Receive Date: 20060911
  Receipt Date: 20060824
  Transmission Date: 20061208
  Serious: Yes (Hospitalization, Other)
  Sender: FDA-Public Use
  Company Number: 2006-DE-04431GD

PATIENT
  Age: 41 Year
  Sex: Male

DRUGS (4)
  1. NAPROXEN [Suspect]
     Indication: CANCER PAIN
     Dosage: 3.3 G, PO
     Route: 048
  2. MORPHINE [Suspect]
     Indication: CANCER PAIN
     Dosage: 90 MG, PO
     Route: 048
  3. TRAMADOL HCL [Suspect]
     Indication: CANCER PAIN
     Dosage: 200 MG, PO
     Route: 048
  4. AMITRIPTYLINE HCL [Suspect]
     Indication: CANCER PAIN
     Dosage: 50 MG, PO
     Route: 048

REACTIONS (11)
  - ARTHRALGIA [None]
  - CONSTIPATION [None]
  - DISCOMFORT [None]
  - DRUG INEFFECTIVE [None]
  - INSOMNIA [None]
  - METASTASES TO SPINE [None]
  - NAUSEA [None]
  - PAIN IN EXTREMITY [None]
  - SEDATION [None]
  - SPINAL CORD COMPRESSION [None]
  - VOMITING [None]
